FAERS Safety Report 4304341-8 (Version None)
Quarter: 2004Q1

REPORT INFORMATION
  Report Type: 
  Country: None (occurrence: None)
  Receive Date: 20040224
  Receipt Date: 20040211
  Transmission Date: 20041129
  Serious: Yes (Other)
  Sender: FDA-Public Use
  Company Number: 2004005099

PATIENT
  Age: 52 Year
  Sex: Female
  Weight: 58.9676 kg

DRUGS (3)
  1. ZYRTEC [Suspect]
     Indication: ANGIONEUROTIC OEDEMA
     Dosage: 10 MG (DAILY), ORAL
     Route: 048
     Dates: start: 20031201
  2. FERROUS SULFATE TAB [Concomitant]
  3. BUDESONIDE (BUDESONIDE) [Concomitant]

REACTIONS (1)
  - COELIAC DISEASE [None]
